FAERS Safety Report 19140273 (Version 2)
Quarter: 2021Q2

REPORT INFORMATION
  Report Type: Spontaneous
  Country: JP (occurrence: JP)
  Receive Date: 20210415
  Receipt Date: 20210429
  Transmission Date: 20210717
  Serious: Yes (Other)
  Sender: FDA-Public Use
  Company Number: JP-JNJFOC-20210426676

PATIENT
  Age: 68 Year
  Sex: Female

DRUGS (4)
  1. TERIPARATIDE BS[BIOSIMILAR 1] [Suspect]
     Active Substance: TERIPARATIDE
     Indication: OSTEOPOROSIS
     Dosage: DOSE UNKNOWN?IN THE MORNING
     Route: 058
     Dates: start: 20201002, end: 202101
  2. ASPARA?CA [Concomitant]
     Active Substance: CALCIUM ASPARTATE
     Route: 048
     Dates: start: 20210106, end: 20210331
  3. TRAMCET [Suspect]
     Active Substance: ACETAMINOPHEN\TRAMADOL
     Indication: PAIN
     Route: 048
     Dates: start: 20200929, end: 20210105
  4. TERIPARATIDE BS[BIOSIMILAR 1] [Suspect]
     Active Substance: TERIPARATIDE
     Indication: OSTEOPOROSIS
     Dosage: DOSE UNKNOWN?IN THE EVENING
     Route: 058
     Dates: start: 202101, end: 20210217

REACTIONS (7)
  - Abdominal distension [Recovered/Resolved]
  - Weight decreased [Unknown]
  - Urine output decreased [Recovered/Resolved]
  - Blood alkaline phosphatase increased [Not Recovered/Not Resolved]
  - Decreased appetite [Recovered/Resolved]
  - Nausea [Recovering/Resolving]
  - Insomnia [Recovered/Resolved]

NARRATIVE: CASE EVENT DATE: 202101
